FAERS Safety Report 17908863 (Version 1)
Quarter: 2020Q2

REPORT INFORMATION
  Report Type: Spontaneous
  Country: US (occurrence: US)
  Receive Date: 20200617
  Receipt Date: 20200617
  Transmission Date: 20200714
  Serious: Yes (Hospitalization)
  Sender: FDA-Public Use
  Company Number: US-MYLANLABS-2020M1056934

PATIENT
  Age: 41 Year
  Sex: Female

DRUGS (1)
  1. METFORMIN [Suspect]
     Active Substance: METFORMIN HYDROCHLORIDE
     Indication: PRODUCT USED FOR UNKNOWN INDICATION
     Dosage: INGESTED 10 TABLETS
     Route: 048

REACTIONS (4)
  - Hypotension [Unknown]
  - Overdose [Unknown]
  - Lactic acidosis [Unknown]
  - Hypoglycaemia [Unknown]
